FAERS Safety Report 15149110 (Version 3)
Quarter: 2018Q4

REPORT INFORMATION
  Report Type: Report from Study
  Country: ES (occurrence: ES)
  Receive Date: 20180716
  Receipt Date: 20181105
  Transmission Date: 20190204
  Serious: Yes (Life-Threatening, Hospitalization)
  Sender: FDA-Public Use
  Company Number: ES-JNJFOC-20180717672

PATIENT
  Sex: Female
  Weight: 68 kg

DRUGS (7)
  1. TRABECTEDIN [Suspect]
     Active Substance: TRABECTEDIN
     Indication: OVARIAN CANCER
     Route: 042
     Dates: start: 20180627
  2. ONDANSETRON [Concomitant]
     Active Substance: ONDANSETRON
     Indication: PROPHYLAXIS OF NAUSEA AND VOMITING
     Dosage: DOSE WAS 8 (UNITS UNSPECIFIED)
     Route: 042
     Dates: start: 20180626, end: 20180626
  3. DEXAMETHASONE. [Concomitant]
     Active Substance: DEXAMETHASONE
     Indication: PROPHYLAXIS
     Dosage: DOSE WAS 20 (UNITS UNSPECIFIED)
     Route: 042
     Dates: start: 20180626, end: 20180626
  4. TRABECTEDIN [Suspect]
     Active Substance: TRABECTEDIN
     Indication: OVARIAN CANCER
     Dosage: CYCLE 1 DOSE WAS 0.9 AND SUSPECTED CYCLE DOSE WAS 1.3 (UNITS UNSPECIFIED)
     Route: 042
     Dates: start: 20171129
  5. APREPITANT. [Concomitant]
     Active Substance: APREPITANT
     Indication: PROPHYLAXIS OF NAUSEA AND VOMITING
     Dosage: 120/80
     Route: 048
     Dates: start: 20180626, end: 20180628
  6. PLD [Suspect]
     Active Substance: DOXORUBICIN HYDROCHLORIDE
     Indication: OVARIAN CANCER
     Route: 042
     Dates: start: 20180627
  7. PLD [Suspect]
     Active Substance: DOXORUBICIN HYDROCHLORIDE
     Indication: OVARIAN CANCER
     Dosage: CYCLE 1 DOSE WAS 30 AND SUSPECTED CYCLE DOSE WAS 35 (UNITS UNSPECIFIED)
     Route: 042
     Dates: start: 20171129

REACTIONS (1)
  - Hepatic infection [Recovered/Resolved]

NARRATIVE: CASE EVENT DATE: 2018
